FAERS Safety Report 9747752 (Version 1)
Quarter: 2013Q4

REPORT INFORMATION
  Report Type: Spontaneous
  Country: FR (occurrence: FR)
  Receive Date: 20131212
  Receipt Date: 20131212
  Transmission Date: 20140711
  Serious: Yes (Hospitalization)
  Sender: FDA-Public Use
  Company Number: FR-ACCORD-020688

PATIENT
  Age: 64 Year
  Sex: Male

DRUGS (10)
  1. DOCETAXEL [Suspect]
     Indication: LARYNGEAL SQUAMOUS CELL CARCINOMA
     Dosage: 150 MG A DAY
     Route: 042
     Dates: start: 20131021
  2. FLUOROURACIL [Suspect]
     Indication: LARYNGEAL SQUAMOUS CELL CARCINOMA
     Dosage: 1500 MG A DAY
     Route: 042
     Dates: start: 20131021, end: 20131025
  3. SKENAN [Concomitant]
  4. ACTISKENAN [Concomitant]
  5. KARDEGIC [Concomitant]
  6. CISPLATIN [Suspect]
     Indication: LARYNGEAL SQUAMOUS CELL CARCINOMA
     Dosage: 150 MG (DAY 1)
     Route: 042
     Dates: start: 20131021
  7. INEXIUM [Concomitant]
     Route: 048
  8. XANAX [Concomitant]
  9. ATORVASTATIN [Concomitant]
     Route: 048
  10. CARBOPLATIN [Concomitant]

REACTIONS (3)
  - Colitis ischaemic [Recovered/Resolved with Sequelae]
  - Septic shock [Recovered/Resolved]
  - Off label use [Unknown]
